FAERS Safety Report 7964853-2 (Version None)
Quarter: 2011Q4

REPORT INFORMATION
  Report Type: 
  Country: None (occurrence: None)
  Receive Date: 20111208
  Receipt Date: 20111206
  Transmission Date: 20120403
  Serious: Yes (Other)
  Sender: FDA-Public Use
  Company Number: PHHY2011CA106404

PATIENT

DRUGS (5)
  1. ALISKIREN [Suspect]
     Dosage: 300 MG
  2. CALCIUM CHANNEL BLOCKERS [Concomitant]
  3. DIURETICS [Concomitant]
  4. ACE INHIBITOR NOS [Concomitant]
  5. BETA BLOCKING AGENTS [Concomitant]

REACTIONS (3)
  - URINE ALBUMIN/CREATININE RATIO INCREASED [None]
  - RENAL FAILURE CHRONIC [None]
  - BLOOD CREATININE INCREASED [None]
